FAERS Safety Report 20730377 (Version 1)
Quarter: 2022Q2

REPORT INFORMATION
  Report Type: Report from Study
  Country: IN (occurrence: IN)
  Receive Date: 20220420
  Receipt Date: 20220420
  Transmission Date: 20220721
  Serious: Yes (Other)
  Sender: FDA-Public Use
  Company Number: IN-Merck Healthcare KGaA-9312573

PATIENT
  Age: 75 Year
  Sex: Male

DRUGS (1)
  1. CETUXIMAB [Suspect]
     Active Substance: CETUXIMAB
     Indication: Product used for unknown indication
     Dosage: 500 MG, WEEKLY (1/W)
     Route: 065

REACTIONS (2)
  - Weight decreased [Unknown]
  - Asthenia [Unknown]
